FAERS Safety Report 24069036 (Version 1)
Quarter: 2024Q3

REPORT INFORMATION
  Report Type: Report from Study
  Country: TR (occurrence: TR)
  Receive Date: 20240710
  Receipt Date: 20240710
  Transmission Date: 20241017
  Serious: No
  Sender: ROCHE
  Company Number: TR-ROCHE-3446169

PATIENT
  Age: 43 Year
  Sex: Female
  Weight: 80.0 kg

DRUGS (1)
  1. ALECTINIB [Suspect]
     Active Substance: ALECTINIB
     Indication: Non-small cell lung cancer metastatic
     Route: 048
     Dates: start: 20210713

REACTIONS (1)
  - Otitis media [Recovering/Resolving]

NARRATIVE: CASE EVENT DATE: 20231017
